FAERS Safety Report 5859703-4 (Version None)
Quarter: 2008Q3

REPORT INFORMATION
  Report Type: 
  Country: None (occurrence: None)
  Receive Date: 20080827
  Receipt Date: 20080822
  Transmission Date: 20090109
  Serious: Yes (Hospitalization)
  Sender: FDA-Public Use
  Company Number: US-BRISTOL-MYERS SQUIBB COMPANY-14312862

PATIENT
  Sex: Male
  Weight: 120 kg

DRUGS (6)
  1. KENALOG-40 [Suspect]
     Indication: MUSCULOSKELETAL PAIN
     Dosage: KENALOG 40 SINGLE DOSE VIAL
     Route: 014
     Dates: start: 20080816
  2. OMEPRAZOLE [Concomitant]
  3. VASOTEC [Concomitant]
  4. LASIX [Concomitant]
  5. ENTERIC ASPIRIN [Concomitant]
     Dosage: 1 DOSAGEFORM = 81 (UNITS NOT MENTIONED)
  6. ZYLOPRIM [Concomitant]

REACTIONS (8)
  - BREATH SOUNDS ABNORMAL [None]
  - CELLULITIS [None]
  - DELIRIUM [None]
  - HYPERTENSION [None]
  - LETHARGY [None]
  - MENTAL STATUS CHANGES [None]
  - RENAL FAILURE [None]
  - SEPSIS [None]
